FAERS Safety Report 10765685 (Version 1)
Quarter: 2015Q1

REPORT INFORMATION
  Report Type: Spontaneous
  Country: US (occurrence: US)
  Receive Date: 20150205
  Receipt Date: 20150205
  Transmission Date: 20150721
  Serious: No
  Sender: FDA-Public Use
  Company Number: US-GLAXOSMITHKLINE-A1064341A

PATIENT

DRUGS (19)
  1. BENLYSTA [Suspect]
     Active Substance: BELIMUMAB
     Indication: SYSTEMIC LUPUS ERYTHEMATOSUS
     Route: 042
     Dates: start: 20140218
  2. PREDNISONE. [Concomitant]
     Active Substance: PREDNISONE
  3. PLAQUENIL [Concomitant]
     Active Substance: HYDROXYCHLOROQUINE SULFATE
  4. CYMBALTA [Concomitant]
     Active Substance: DULOXETINE HYDROCHLORIDE
  5. CITALOPRAM [Concomitant]
     Active Substance: CITALOPRAM HYDROBROMIDE
  6. IBUPROFEN. [Concomitant]
     Active Substance: IBUPROFEN
  7. LYRICA [Concomitant]
     Active Substance: PREGABALIN
  8. LORTAB [Concomitant]
     Active Substance: ACETAMINOPHEN\HYDROCODONE BITARTRATE
  9. LEFLUNOMIDE. [Concomitant]
     Active Substance: LEFLUNOMIDE
  10. PRENATAL VITAMINS [Concomitant]
     Active Substance: VITAMINS
  11. UROGESIC BLUE [Concomitant]
     Active Substance: HYOSCYAMINE SULFATE\METHENAMINE\METHYLENE BLUE\SODIUM PHOSPHATE, MONOBASIC
  12. AMBIEN [Concomitant]
     Active Substance: ZOLPIDEM TARTRATE
  13. XALATAN [Concomitant]
     Active Substance: LATANOPROST
  14. MYRBETRIQ [Concomitant]
     Active Substance: MIRABEGRON
  15. PREDNISONE EYE DROPS [Concomitant]
     Active Substance: PREDNISONE
  16. LIDODERM [Concomitant]
     Active Substance: LIDOCAINE
  17. OCULAR LUBRICANTS [Concomitant]
  18. NORVASC [Concomitant]
     Active Substance: AMLODIPINE BESYLATE
  19. GAMMAGLOBULIN [Concomitant]
     Active Substance: HUMAN IMMUNOGLOBULIN G

REACTIONS (5)
  - Walking aid user [Unknown]
  - Pain [Unknown]
  - Gait disturbance [Not Recovered/Not Resolved]
  - Feeling abnormal [Unknown]
  - Arthralgia [Unknown]

NARRATIVE: CASE EVENT DATE: 20140219
